FAERS Safety Report 20162844 (Version 1)
Quarter: 2021Q4

REPORT INFORMATION
  Report Type: Spontaneous
  Country: JP (occurrence: JP)
  Receive Date: 20211209
  Receipt Date: 20211209
  Transmission Date: 20220303
  Serious: Yes (Other)
  Sender: FDA-Public Use
  Company Number: JP-SUN PHARMACEUTICAL INDUSTRIES LTD-2021R1-317725

PATIENT
  Sex: Male

DRUGS (1)
  1. LIORESAL [Suspect]
     Active Substance: BACLOFEN
     Indication: Hiccups
     Dosage: 5 MILLIGRAM, TID
     Route: 048
     Dates: start: 20211108, end: 20211110

REACTIONS (2)
  - Altered state of consciousness [Recovering/Resolving]
  - Overdose [Unknown]
